FAERS Safety Report 5363092-1 (Version None)
Quarter: 2007Q2

REPORT INFORMATION
  Report Type: 
  Country: None (occurrence: None)
  Receive Date: 20070615
  Receipt Date: 20070531
  Transmission Date: 20071010
  Serious: Yes (Life-Threatening)
  Sender: FDA-Public Use
  Company Number: 8024464

PATIENT
  Age: 48 Year
  Sex: Male

DRUGS (2)
  1. KEPPRA [Suspect]
     Indication: CONDITION AGGRAVATED
     Dosage: 750 MG 1/D PO
     Route: 048
     Dates: start: 20070310, end: 20070409
  2. KEPPRA [Suspect]
     Indication: EPILEPSY
     Dosage: 750 MG 1/D PO
     Route: 048
     Dates: start: 20070310, end: 20070409

REACTIONS (2)
  - HEPATIC FAILURE [None]
  - HEPATITIS CHOLESTATIC [None]
